FAERS Safety Report 4436089-3 (Version None)
Quarter: 2004Q3

REPORT INFORMATION
  Report Type: 
  Country: None (occurrence: None)
  Receive Date: 20040726
  Receipt Date: 20040227
  Transmission Date: 20050211
  Serious: No
  Sender: FDA-Public Use
  Company Number: USA040360492

PATIENT

DRUGS (6)
  1. FORTEO [Suspect]
     Indication: OSTEOPOROSIS
     Dates: start: 20040223
  2. PREVACID [Concomitant]
  3. TAMOXIFEN CITRATE [Concomitant]
  4. QUININE [Concomitant]
  5. DESYRL (TRAZODONE HYDROCHLORIDE) [Concomitant]
  6. AREDIA [Concomitant]

REACTIONS (1)
  - INJECTION SITE ERYTHEMA [None]
